FAERS Safety Report 13828333 (Version 3)
Quarter: 2017Q4

REPORT INFORMATION
  Report Type: Spontaneous
  Country: US (occurrence: US)
  Receive Date: 20170803
  Receipt Date: 20171103
  Transmission Date: 20180320
  Serious: Yes (Death, Other)
  Sender: FDA-Public Use
  Company Number: US-PFIZER INC-2017256750

PATIENT
  Age: 62 Year
  Sex: Female
  Weight: 81 kg

DRUGS (1)
  1. IBRANCE [Suspect]
     Active Substance: PALBOCICLIB
     Indication: BLADDER CANCER
     Dosage: 125 MG, CYCLIC (1CAPSULE A DAY BY MOUTH FOR 21 DAYS AND THEN OFF FOR 7 DAYS))
     Route: 048
     Dates: end: 20170925

REACTIONS (3)
  - Product use in unapproved indication [Unknown]
  - Death [Fatal]
  - Thrombocytopenia [Unknown]
